FAERS Safety Report 16478195 (Version 1)
Quarter: 2019Q2

REPORT INFORMATION
  Report Type: Spontaneous
  Country: US (occurrence: US)
  Receive Date: 20190626
  Receipt Date: 20190626
  Transmission Date: 20190711
  Serious: No
  Sender: FDA-Public Use
  Company Number: US-TEVA-2019-US-1060290

PATIENT
  Sex: Male
  Weight: 99.79 kg

DRUGS (1)
  1. GABAPENTIN ACTAVIS [Suspect]
     Active Substance: GABAPENTIN
     Indication: PARAESTHESIA
     Dosage: 1800 MILLIGRAM DAILY;
     Route: 048

REACTIONS (5)
  - Wound haemorrhage [Unknown]
  - Skin wound [Unknown]
  - Product use in unapproved indication [Unknown]
  - Pruritus [Unknown]
  - Drug hypersensitivity [Unknown]
